FAERS Safety Report 17443603 (Version 1)
Quarter: 2020Q1

REPORT INFORMATION
  Report Type: Spontaneous
  Country: US (occurrence: US)
  Receive Date: 20200220
  Receipt Date: 20200220
  Transmission Date: 20200409
  Serious: No
  Sender: FDA-Public Use
  Company Number: None

PATIENT
  Age: 67 Year
  Sex: Female
  Weight: 43.2 kg

DRUGS (4)
  1. LANTANOPROST [Concomitant]
     Active Substance: LATANOPROST
  2. RHOPRESSA [Suspect]
     Active Substance: NETARSUDIL MESYLATE
     Indication: GLAUCOMA
     Dosage: ?          QUANTITY:1 DROP(S);OTHER FREQUENCY:IN EVENING;?
     Route: 047
     Dates: start: 20190819, end: 20200205
  3. ALIVE FOR WOMEN OVER 50 [Concomitant]
  4. COMBIGAN [Concomitant]
     Active Substance: BRIMONIDINE TARTRATE\TIMOLOL MALEATE

REACTIONS (5)
  - Crying [None]
  - Ocular hyperaemia [None]
  - Foreign body sensation in eyes [None]
  - Eye pruritus [None]
  - Eye discharge [None]

NARRATIVE: CASE EVENT DATE: 20200110
